FAERS Safety Report 20223058 (Version 2)
Quarter: 2021Q4

REPORT INFORMATION
  Report Type: Spontaneous
  Country: FR (occurrence: FR)
  Receive Date: 20211223
  Receipt Date: 20211228
  Transmission Date: 20220303
  Serious: Yes (Hospitalization)
  Sender: FDA-Public Use
  Company Number: None

PATIENT
  Age: 70 Year
  Sex: Female

DRUGS (4)
  1. PAROXETINE [Suspect]
     Active Substance: PAROXETINE
     Dosage: 20 MG ,THERAPY START DATE :NOT ASKED ,PAROXETINE BASE
     Route: 048
  2. NEBIVOLOL [Suspect]
     Active Substance: NEBIVOLOL
     Indication: Hypertension
     Dosage: 2.5 MG,THERAPY START DATE :ASKU
     Route: 048
  3. COMIRNATY [Suspect]
     Active Substance: TOZINAMERAN
     Indication: COVID-19 immunisation
     Dosage: R1,UNIT DOSE :1 DOSAGE FORMS ,COMIRNATY, CONCENTRATE FOR INJECTION. COVID-19 MRNA VACCINE (MODIFIED
     Route: 030
     Dates: end: 20211123
  4. FOSAVANCE [Suspect]
     Active Substance: ALENDRONATE SODIUM\CHOLECALCIFEROL
     Dosage: 70 MG ,THERAPY START DATE :NOT ASKED ,FOSAVANCE, TABLET
     Route: 048

REACTIONS (1)
  - Haemorrhagic stroke [Recovering/Resolving]

NARRATIVE: CASE EVENT DATE: 20211123
